FAERS Safety Report 17836831 (Version 1)
Quarter: 2020Q2

REPORT INFORMATION
  Report Type: Report from Study
  Country: GB (occurrence: GB)
  Receive Date: 20200528
  Receipt Date: 20200528
  Transmission Date: 20200714
  Serious: Yes (Other)
  Sender: FDA-Public Use
  Company Number: GB-GLAXOSMITHKLINE-GB2020EME089156

PATIENT

DRUGS (1)
  1. MEPOLIZUMAB [Suspect]
     Active Substance: MEPOLIZUMAB
     Indication: ASTHMA
     Dosage: 100 MG,EVERY 4 WEEK
     Route: 042

REACTIONS (9)
  - Nasal abscess [Unknown]
  - Otorrhoea [Recovering/Resolving]
  - Swelling face [Unknown]
  - Lip pain [Unknown]
  - Nasal oedema [Unknown]
  - Rhinorrhoea [Recovering/Resolving]
  - Lip swelling [Unknown]
  - Rhinalgia [Unknown]
  - Facial pain [Unknown]
